FAERS Safety Report 5909748-0 (Version None)
Quarter: 2008Q4

REPORT INFORMATION
  Report Type: 
  Country: None (occurrence: None)
  Receive Date: 20081002
  Receipt Date: 20080728
  Transmission Date: 20090506
  Serious: Yes (Hospitalization)
  Sender: FDA-Public Use
  Company Number: 2008EU001482

PATIENT
  Age: 84 Year
  Sex: Female
  Weight: 50 kg

DRUGS (8)
  1. PROTOPIC [Suspect]
     Indication: ECZEMA
     Dosage: 0.03%, BID, TOPICAL; 0.03%, UID/QD, TOPICAL
     Route: 061
     Dates: end: 20080209
  2. PROTOPIC [Suspect]
     Indication: ECZEMA
     Dosage: 0.03%, BID, TOPICAL; 0.03%, UID/QD, TOPICAL
     Route: 061
     Dates: start: 20080204
  3. DIAMICRON (GLICLAZIDE) [Concomitant]
  4. COSAAR (LOSARTAN POTASSIUM) [Concomitant]
  5. PREVISCAN (FLUINDIONE) [Concomitant]
  6. FEMARA [Concomitant]
  7. MOPRAL [Concomitant]
  8. FERROUS SULFATE TAB [Concomitant]

REACTIONS (5)
  - BLEPHARITIS [None]
  - BREAST CANCER [None]
  - CARDIAC FAILURE [None]
  - CONDITION AGGRAVATED [None]
  - PLEURAL EFFUSION [None]
